FAERS Safety Report 14803053 (Version 1)
Quarter: 2018Q2

REPORT INFORMATION
  Report Type: Spontaneous
  Country: US (occurrence: US)
  Receive Date: 20180424
  Receipt Date: 20180424
  Transmission Date: 20180711
  Serious: Yes (Hospitalization)
  Sender: FDA-Public Use
  Company Number: PHHY2018US065365

PATIENT
  Age: 18 Year
  Sex: Female

DRUGS (1)
  1. BUPROPION. [Suspect]
     Active Substance: BUPROPION
     Indication: DEPRESSION
     Dosage: 27 G, UNK
     Route: 065

REACTIONS (10)
  - Lethargy [Unknown]
  - Somnolence [Unknown]
  - Hypotension [Recovering/Resolving]
  - Overdose [Recovering/Resolving]
  - Coma [Recovered/Resolved]
  - Haemodynamic instability [Recovering/Resolving]
  - Sinus tachycardia [Unknown]
  - Cardiotoxicity [Recovering/Resolving]
  - Loss of consciousness [Recovered/Resolved]
  - Status epilepticus [Unknown]
